FAERS Safety Report 26207610 (Version 1)
Quarter: 2025Q4

REPORT INFORMATION
  Report Type: Spontaneous
  Country: EU (occurrence: EU)
  Receive Date: 20251229
  Receipt Date: 20251229
  Transmission Date: 20260118
  Serious: Yes (Life-Threatening, Hospitalization)
  Sender: TEVA
  Company Number: None

PATIENT
  Age: 57 Year
  Sex: Female

DRUGS (2)
  1. ETOPOSIDE [Suspect]
     Active Substance: ETOPOSIDE
     Indication: Germ cell cancer
     Dosage: TIME INTERVAL: CYCLICAL: 165MG/M2 DAYS 1-3 CYCLES EVERY 21 DAYS, ETOPOSIDE (518A)
     Route: 042
     Dates: start: 20250910, end: 20251010
  2. CISPLATIN [Suspect]
     Active Substance: CISPLATIN
     Indication: Germ cell cancer
     Dosage: TIME INTERVAL: CYCLICAL: 50MG/M2 DAYS 1 AND 2 EVERY 21 DAYS, 2 CYCLES,CISPLATIN (644A)
     Route: 042
     Dates: start: 20250910, end: 20251009

REACTIONS (2)
  - Agranulocytosis [Recovered/Resolved]
  - Thrombocytopenia [Recovering/Resolving]

NARRATIVE: CASE EVENT DATE: 20251018
